FAERS Safety Report 15688603 (Version 1)
Quarter: 2018Q4

REPORT INFORMATION
  Report Type: Spontaneous
  Country: ES (occurrence: ES)
  Receive Date: 20181205
  Receipt Date: 20181205
  Transmission Date: 20190205
  Serious: Yes (Death)
  Sender: FDA-Public Use
  Company Number: ES-ACCORD-095134

PATIENT
  Age: 71 Year
  Sex: Female

DRUGS (1)
  1. BENDAMUSTINE/BENDAMUSTINE HYDROCHLORIDE [Suspect]
     Active Substance: BENDAMUSTINE HYDROCHLORIDE
     Indication: NON-HODGKIN^S LYMPHOMA
     Dosage: 120MG / M2 DAY 1, 2 EVERY 21 DAYS
     Route: 042
     Dates: start: 201702, end: 201705

REACTIONS (2)
  - Febrile neutropenia [Fatal]
  - Septic shock [Fatal]

NARRATIVE: CASE EVENT DATE: 20170420
